FAERS Safety Report 4597063-X (Version None)
Quarter: 2005Q1

REPORT INFORMATION
  Report Type: 
  Country: None (occurrence: None)
  Receive Date: 20050301
  Receipt Date: 20050211
  Transmission Date: 20050727
  Serious: No
  Sender: FDA-Public Use
  Company Number: A01200500801

PATIENT
  Age: 66 Year
  Sex: Male

DRUGS (6)
  1. PLAVIX [Suspect]
     Indication: STENT PLACEMENT
     Dosage: ORAL
     Route: 048
  2. BISOPROLOL FUMARATE [Concomitant]
  3. INSULIN [Concomitant]
  4. SIMVASTATIN [Concomitant]
  5. ASPIRIN [Concomitant]
  6. FRUSEMIDE [Concomitant]

REACTIONS (3)
  - ANAEMIA [None]
  - EOSINOPHIL COUNT INCREASED [None]
  - LYMPHOMA [None]
